FAERS Safety Report 6695052-2 (Version None)
Quarter: 2010Q2

REPORT INFORMATION
  Report Type: 
  Country: None (occurrence: None)
  Receive Date: 20100423
  Receipt Date: 20100413
  Transmission Date: 20101027
  Serious: Yes (Hospitalization, Other)
  Sender: FDA-Public Use
  Company Number: PHHY2010RU23845

PATIENT
  Age: 44 Year
  Sex: Male

DRUGS (1)
  1. SANDIMMUNE [Suspect]
     Route: 048

REACTIONS (2)
  - HEPATITIS [None]
  - OSTEOPOROSIS [None]
